FAERS Safety Report 4410436-0 (Version None)
Quarter: 2004Q3

REPORT INFORMATION
  Report Type: 
  Country: None (occurrence: None)
  Receive Date: 20040728
  Receipt Date: 20040719
  Transmission Date: 20050211
  Serious: Yes (Hospitalization)
  Sender: FDA-Public Use
  Company Number: IT-MERCK-0407USA01820

PATIENT
  Age: 10 Year
  Sex: Male
  Weight: 30 kg

DRUGS (5)
  1. ASPIRIN [Concomitant]
     Indication: PERICARDITIS
     Route: 065
  2. CEFTRIAXONE SODIUM [Concomitant]
     Indication: MENINGOCOCCAL INFECTION
     Route: 065
  3. DECADRON [Suspect]
     Indication: MENINGOCOCCAL INFECTION
     Route: 048
  4. PENICILLIN (UNSPECIFIED) [Concomitant]
     Indication: MENINGOCOCCAL INFECTION
     Route: 065
  5. PREDNISONE [Suspect]
     Indication: PERICARDITIS
     Route: 065

REACTIONS (1)
  - PERICARDITIS [None]
